FAERS Safety Report 8902011 (Version 2)
Quarter: 2013Q1

REPORT INFORMATION
  Report Type: Spontaneous
  Country: FI (occurrence: FI)
  Receive Date: 20121112
  Receipt Date: 20130114
  Transmission Date: 20140127
  Serious: Yes (Hospitalization)
  Sender: FDA-Public Use
  Company Number: FI-ELI_LILLY_AND_COMPANY-FI201211000475

PATIENT
  Age: 82 Year
  Sex: Female

DRUGS (8)
  1. FORSTEO [Suspect]
     Indication: OSTEOPOROSIS
     Dosage: 20 UG, QD
     Route: 058
     Dates: start: 20120901
  2. MAREVAN [Concomitant]
     Indication: THROMBOSIS PROPHYLAXIS
     Dosage: UNK
  3. CORTISONE [Concomitant]
     Indication: RHEUMATIC DISORDER
     Dosage: 5 MG, UNK
  4. IDEOS [Concomitant]
     Indication: MEDICAL DIET
     Dosage: UNK
  5. FURESIS [Concomitant]
     Indication: DIURETIC THERAPY
     Dosage: UNK
  6. FURESIS [Concomitant]
     Dosage: 2 TWICE DAILY
  7. IMUREL [Concomitant]
     Indication: RHEUMATIC DISORDER
     Dosage: UNK
  8. REUMACON [Concomitant]
     Indication: RHEUMATIC DISORDER
     Dosage: UNK

REACTIONS (1)
  - Pulmonary oedema [Recovered/Resolved]
